FAERS Safety Report 11796307 (Version 2)
Quarter: 2016Q3

REPORT INFORMATION
  Report Type: Spontaneous
  Country: IT (occurrence: IT)
  Receive Date: 20151203
  Receipt Date: 20160802
  Transmission Date: 20161109
  Serious: No
  Sender: FDA-Public Use
  Company Number: IT-GLENMARK PHARMACEUTICALS INC, USA.-2015GMK015052

PATIENT
  Age: 43 Year
  Sex: Female

DRUGS (2)
  1. PRAMIPEXOLE. [Suspect]
     Active Substance: PRAMIPEXOLE
     Indication: URINARY INCONTINENCE
     Dosage: 0.18 MG, HS (BEFORE BEDTIME)
  2. PRAMIPEXOLE. [Suspect]
     Active Substance: PRAMIPEXOLE
     Indication: BLADDER DISCOMFORT

REACTIONS (2)
  - Therapeutic response unexpected [Unknown]
  - Off label use [Unknown]
